FAERS Safety Report 8589016-1 (Version None)
Quarter: 2012Q3

REPORT INFORMATION
  Report Type: 
  Country: None (occurrence: None)
  Receive Date: 20120813
  Receipt Date: 20120801
  Transmission Date: 20120928
  Serious: Yes (Hospitalization, Disabling, Other)
  Sender: FDA-Public Use
  Company Number: US-009507513-1205USA04575

PATIENT

DRUGS (4)
  1. ALENDRONATE SODIUM [Suspect]
     Indication: OSTEOPOROSIS
     Dosage: 70 MG, QW
     Route: 048
     Dates: start: 20080401, end: 20090501
  2. CALCIUM (UNSPECIFIED) (+) VITAMIN D (UNSPECIFIED) [Concomitant]
     Dosage: 750 MG, BID
     Dates: start: 20000101
  3. FOSAMAX [Suspect]
     Indication: OSTEOPOROSIS
     Dosage: 10 MG, QD
     Route: 048
     Dates: start: 20000626, end: 20090501
  4. FOSAMAX [Suspect]
     Dosage: 70 MG, QW
     Route: 048
     Dates: start: 20021002, end: 20090501

REACTIONS (16)
  - VENTRICULAR EXTRASYSTOLES [None]
  - LOW TURNOVER OSTEOPATHY [None]
  - LIMB INJURY [None]
  - OSTEOARTHRITIS [None]
  - DRUG INEFFECTIVE [None]
  - OEDEMA PERIPHERAL [None]
  - OSTEOPOROSIS [None]
  - EXPLORATIVE LAPAROTOMY [None]
  - FEMUR FRACTURE [None]
  - STRESS FRACTURE [None]
  - ECCHYMOSIS [None]
  - CHEST PAIN [None]
  - ELECTROCARDIOGRAM ST-T CHANGE [None]
  - HAND FRACTURE [None]
  - OSTEOPENIA [None]
  - BLOOD PRESSURE INCREASED [None]
